FAERS Safety Report 19950578 (Version 2)
Quarter: 2021Q4

REPORT INFORMATION
  Report Type: Spontaneous
  Country: GB (occurrence: GB)
  Receive Date: 20211013
  Receipt Date: 20211014
  Transmission Date: 20220304
  Serious: Yes (Other)
  Sender: FDA-Public Use
  Company Number: None

PATIENT
  Sex: Female

DRUGS (1)
  1. ESCITALOPRAM [Suspect]
     Active Substance: ESCITALOPRAM OXALATE
     Indication: Product used for unknown indication
     Dosage: TOOK 1 TABLET

REACTIONS (7)
  - Mania [Unknown]
  - Tremor [Unknown]
  - Vomiting [Unknown]
  - Cerebral disorder [Unknown]
  - Product quality issue [Unknown]
  - Insomnia [Unknown]
  - Impulsive behaviour [Unknown]
